FAERS Safety Report 24775837 (Version 1)
Quarter: 2024Q4

REPORT INFORMATION
  Report Type: Spontaneous
  Country: HU (occurrence: HU)
  Receive Date: 20241226
  Receipt Date: 20241226
  Transmission Date: 20250114
  Serious: Yes (Other)
  Sender: TAKEDA
  Company Number: HU-TAKEDA-2024TUS112451

PATIENT
  Sex: Female

DRUGS (3)
  1. BRIGATINIB [Suspect]
     Active Substance: BRIGATINIB
     Indication: Non-small cell lung cancer metastatic
     Dosage: 180 MILLIGRAM, QD
  2. BRIGATINIB [Suspect]
     Active Substance: BRIGATINIB
     Indication: Metastases to lymph nodes
  3. BRIGATINIB [Suspect]
     Active Substance: BRIGATINIB
     Indication: Metastases to peritoneum

REACTIONS (2)
  - Pancreatic carcinoma [Unknown]
  - Abdominal pain [Unknown]
